FAERS Safety Report 13757722 (Version 2)
Quarter: 2017Q3

REPORT INFORMATION
  Report Type: Report from Study
  Country: US (occurrence: US)
  Receive Date: 20170717
  Receipt Date: 20170721
  Transmission Date: 20171127
  Serious: Yes (Other)
  Sender: FDA-Public Use
  Company Number: US-CIPLA LTD.-2017US12091

PATIENT

DRUGS (7)
  1. PEGFILGRASTIM [Concomitant]
     Active Substance: PEGFILGRASTIM
     Indication: SUPPORTIVE CARE
     Dosage: 6MG/0.6ML ON DAY 4 OF EACH 2 WEEK CYCLE
     Route: 065
  2. IRINOTECAN [Suspect]
     Active Substance: IRINOTECAN
     Indication: PANCREATIC CARCINOMA METASTATIC
     Dosage: 140 MG/M2, 90 MINUTE INTRAVENOUS INFUSION ON DAYS 1-3 OF EACH 2 WEEK CYCLE
     Route: 042
  3. OXALIPLATIN. [Suspect]
     Active Substance: OXALIPLATIN
     Indication: PANCREATIC CARCINOMA METASTATIC
     Dosage: 65 MG/M2, 2 HOUR INTRAVENOUS INFUSION ON DAYS 1-3 OF EACH 2 WEEK CYCLE
     Route: 042
  4. FLUOROURACIL. [Suspect]
     Active Substance: FLUOROURACIL
     Indication: PANCREATIC CARCINOMA METASTATIC
     Dosage: 400 MG/M2 BOLUS, ON DAYS 1-3 OF EACH 2 WEEK CYCLE
     Route: 042
  5. FLUOROURACIL. [Suspect]
     Active Substance: FLUOROURACIL
     Dosage: 2400 MG/M2 OVER 46 H, CONTINUOUS INTRAVENOUS INFUSION, ON DAYS 1-3 OF EACH 2 WEEK CYCLE
     Route: 042
  6. LEUCOVORIN. [Suspect]
     Active Substance: LEUCOVORIN
     Indication: PANCREATIC CARCINOMA METASTATIC
     Dosage: 400 MG/M2,90-MIN INTRAVENOUS INFUSION IMMEDIATELY AFTER OXALIPLATIN ON DAYS 1-3 OF EACH 2 WEEK CYCLE
     Route: 042
  7. CPI-613 [Suspect]
     Active Substance: INVESTIGATIONAL PRODUCT
     Indication: PANCREATIC CARCINOMA METASTATIC
     Dosage: 500 MG/M2, PER DAY AT RATE OF 4ML/MINUTE ON DAY 1 AND 3 OF EACH CYCLE
     Route: 065

REACTIONS (1)
  - Hyperglycaemia [Unknown]
